FAERS Safety Report 4405291-9 (Version None)
Quarter: 2004Q3

REPORT INFORMATION
  Report Type: 
  Country: None (occurrence: None)
  Receive Date: 20040716
  Receipt Date: 20040705
  Transmission Date: 20050211
  Serious: Yes (Other)
  Sender: FDA-Public Use
  Company Number: S04-FRA-02923-01

PATIENT
  Age: 81 Year
  Sex: Female

DRUGS (6)
  1. MEMANTINE HCL [Suspect]
     Indication: DEMENTIA ALZHEIMER'S TYPE
     Dosage: 10 MG QD PO
     Route: 048
  2. MEMANTINE HCL [Suspect]
     Indication: DEMENTIA ALZHEIMER'S TYPE
     Dosage: 5 MG QD PO
     Route: 048
     Dates: start: 20031101
  3. ARICEPT [Concomitant]
  4. PAROXETINE HCL [Concomitant]
  5. TIAPRIDAL (TIAPRIDE) [Concomitant]
  6. ALPRAZOLAM [Concomitant]

REACTIONS (4)
  - AGGRESSION [None]
  - BITE [None]
  - DIET REFUSAL [None]
  - EXCITABILITY [None]
